FAERS Safety Report 17206054 (Version 4)
Quarter: 2020Q2

REPORT INFORMATION
  Report Type: Spontaneous
  Country: JP (occurrence: JP)
  Receive Date: 20191227
  Receipt Date: 20200604
  Transmission Date: 20200713
  Serious: Yes (Hospitalization)
  Sender: FDA-Public Use
  Company Number: JP-AMGEN-JPNSP2019215434

PATIENT
  Age: 65 Year
  Sex: Female

DRUGS (39)
  1. G-LASTA [Suspect]
     Active Substance: PEGFILGRASTIM
     Dosage: 3.6 UNK
     Route: 058
     Dates: start: 20191116, end: 20191116
  2. HERCEPTIN [Suspect]
     Active Substance: TRASTUZUMAB
     Indication: BREAST CANCER
     Dosage: 510 MG
     Route: 041
     Dates: start: 20191004, end: 20191004
  3. BIOFERMIN [BIFIDOBACTERIUM NOS] [Concomitant]
     Indication: PRODUCT USED FOR UNKNOWN INDICATION
     Dosage: UNK, TID (AFTER EACH MEAL)
     Route: 048
  4. BIOTIN [Concomitant]
     Active Substance: BIOTIN
     Indication: PRODUCT USED FOR UNKNOWN INDICATION
     Dosage: UNK, BID (AFTER BREAKFAST AND DINNER)
     Route: 048
  5. FEXOFENADINE HYDROCHLORIDE. [Concomitant]
     Active Substance: FEXOFENADINE HYDROCHLORIDE
     Indication: PRODUCT USED FOR UNKNOWN INDICATION
     Dosage: UNK, BID(AFTER BREAKFAST AND DINNER)
     Route: 048
  6. ALOSENN [SENNOSIDE A+B] [Concomitant]
     Indication: CONSTIPATION
     Dosage: UNK UNK, AS NECESSARY
     Route: 048
  7. POLYFUL [Concomitant]
     Active Substance: CALCIUM POLYCARBOPHIL
     Indication: PRODUCT USED FOR UNKNOWN INDICATION
     Dosage: UNK, TID (AFTER EACH MEAL)
     Route: 048
  8. OLANZAPINE. [Concomitant]
     Active Substance: OLANZAPINE
     Indication: PRODUCT USED FOR UNKNOWN INDICATION
     Dosage: UNK, QD (AFTER DINNER)
     Route: 048
  9. LOPEMIN [LOPERAMIDE HYDROCHLORIDE] [Concomitant]
     Active Substance: LOPERAMIDE HYDROCHLORIDE
     Indication: DIARRHOEA
     Dosage: UNK UNK, AS NECESSARY
     Route: 048
  10. LOXOPROFEN NA [Concomitant]
     Active Substance: LOXOPROFEN SODIUM
     Indication: PAIN
     Dosage: UNK UNK, AS NECESSARY
     Route: 048
  11. ENDOXAN [CYCLOPHOSPHAMIDE] [Suspect]
     Active Substance: CYCLOPHOSPHAMIDE
     Indication: BREAST CANCER
     Dosage: 975 MG
     Route: 041
     Dates: start: 20191004, end: 20191004
  12. ENDOXAN [CYCLOPHOSPHAMIDE] [Suspect]
     Active Substance: CYCLOPHOSPHAMIDE
     Dosage: 735 MG
     Route: 041
     Dates: start: 20191115, end: 20191115
  13. HERCEPTIN [Suspect]
     Active Substance: TRASTUZUMAB
     Dosage: 380 MG
     Route: 041
     Dates: start: 20191025, end: 20191025
  14. DOCETAXEL. [Suspect]
     Active Substance: DOCETAXEL
     Dosage: 120 MG
     Route: 041
     Dates: start: 20191025, end: 20191025
  15. REBAMIPIDE [Concomitant]
     Active Substance: REBAMIPIDE
     Indication: PRODUCT USED FOR UNKNOWN INDICATION
     Dosage: UNK, AS NECESSARY (AT THE TIME OF PAIN)
     Route: 048
  16. TRAZODONE HYDROCHLORIDE. [Concomitant]
     Active Substance: TRAZODONE HYDROCHLORIDE
     Indication: PRODUCT USED FOR UNKNOWN INDICATION
     Dosage: UNK, QD (BEFORE SLEEP)
     Route: 048
  17. OLOPATADINE HYDROCHLORIDE. [Concomitant]
     Active Substance: OLOPATADINE HYDROCHLORIDE
     Indication: PRODUCT USED FOR UNKNOWN INDICATION
     Dosage: UNK, BID (AFTER BREAKFAST AND DINNER)
     Route: 048
  18. DOCETAXEL. [Suspect]
     Active Substance: DOCETAXEL
     Indication: BREAST CANCER
     Dosage: 120 MG
     Route: 041
     Dates: start: 20191004, end: 20191004
  19. HERCEPTIN [Suspect]
     Active Substance: TRASTUZUMAB
     Dosage: 380 MG
     Route: 041
     Dates: start: 20191115, end: 20191115
  20. BIOFERMIN [BIFIDOBACTERIUM NOS] [Concomitant]
     Dosage: UNK, TID (AFTER EACH MEAL)
     Route: 048
  21. RABEPRAZOLE NA [Concomitant]
     Active Substance: RABEPRAZOLE SODIUM
     Indication: PRODUCT USED FOR UNKNOWN INDICATION
     Dosage: UNK, QD (AFTER DINNER)
     Route: 048
  22. REBAMIPIDE [Concomitant]
     Active Substance: REBAMIPIDE
     Indication: PAIN
     Dosage: UNK, TID (AFTER EACH MEAL)
     Route: 048
  23. HALCION [Concomitant]
     Active Substance: TRIAZOLAM
     Indication: PRODUCT USED FOR UNKNOWN INDICATION
     Dosage: UNK, QD (BEFORE SLEEP)
     Route: 048
  24. RIVOTRIL [Concomitant]
     Active Substance: CLONAZEPAM
     Indication: PRODUCT USED FOR UNKNOWN INDICATION
     Dosage: UNK, BID (AFTER BREAKFAST AND DINNER)
     Route: 048
  25. G-LASTA [Suspect]
     Active Substance: PEGFILGRASTIM
     Indication: PRODUCT USED FOR UNKNOWN INDICATION
     Dosage: 3.6 MILLIGRAM
     Route: 058
     Dates: start: 20191006, end: 20191006
  26. G-LASTA [Suspect]
     Active Substance: PEGFILGRASTIM
     Dosage: 3.6 UNK
     Route: 058
     Dates: start: 20191027, end: 20191027
  27. ENDOXAN [CYCLOPHOSPHAMIDE] [Suspect]
     Active Substance: CYCLOPHOSPHAMIDE
     Dosage: 645 MG
     Route: 041
     Dates: start: 20191206, end: 20191206
  28. HERCEPTIN [Suspect]
     Active Substance: TRASTUZUMAB
     Dosage: 380 MG
     Route: 041
     Dates: start: 20191206, end: 20191206
  29. ZOLPIDEM TARTRATE. [Concomitant]
     Active Substance: ZOLPIDEM TARTRATE
     Indication: PRODUCT USED FOR UNKNOWN INDICATION
     Dosage: UNK, QD (BEFORE SLEEP)
     Route: 048
  30. RIZE [CLOTIAZEPAM] [Concomitant]
     Active Substance: CLOTIAZEPAM
     Indication: PRODUCT USED FOR UNKNOWN INDICATION
     Dosage: UNK, TID (MORNING, AFTER LUNCH, BEFORE GOING TO BED)
     Route: 048
  31. CARBOCISTEINE [Concomitant]
     Active Substance: CARBOCYSTEINE
     Indication: PRODUCT USED FOR UNKNOWN INDICATION
     Dosage: UNK, TID (AFTER EACH MEAL)
     Route: 048
  32. ENDOXAN [CYCLOPHOSPHAMIDE] [Suspect]
     Active Substance: CYCLOPHOSPHAMIDE
     Dosage: 975 MG
     Route: 041
     Dates: start: 20191025, end: 20191025
  33. DONEPEZIL HYDROCHLORIDE. [Concomitant]
     Active Substance: DONEPEZIL HYDROCHLORIDE
     Indication: PRODUCT USED FOR UNKNOWN INDICATION
     Dosage: UNK, QD (AFTER BREAKFAST)
     Route: 048
  34. MONTELUKAST [MONTELUKAST SODIUM] [Concomitant]
     Active Substance: MONTELUKAST SODIUM
     Indication: PRODUCT USED FOR UNKNOWN INDICATION
     Dosage: UNK, QD (AFTER DINNER)
     Route: 048
  35. DOCETAXEL. [Suspect]
     Active Substance: DOCETAXEL
     Dosage: 100 MG
     Route: 041
     Dates: start: 20191115, end: 20191115
  36. DEPAKENE-R [Concomitant]
     Active Substance: VALPROATE SODIUM
     Indication: PRODUCT USED FOR UNKNOWN INDICATION
     Dosage: UNK, BID (AFTER BREAKFAST AND DINNER)
     Route: 048
  37. TOLEDOMIN [Concomitant]
     Active Substance: MILNACIPRAN HYDROCHLORIDE
     Indication: PRODUCT USED FOR UNKNOWN INDICATION
     Dosage: UNK, QD (AFTER BREAKFAST)
     Route: 048
  38. ATORVASTATIN [ATORVASTATIN CALCIUM] [Concomitant]
     Active Substance: ATORVASTATIN CALCIUM
     Indication: PRODUCT USED FOR UNKNOWN INDICATION
     Dosage: UNK, QD (AFTER DINNER)
     Route: 048
  39. HOCHUEKKITO [Concomitant]
     Active Substance: HERBALS
     Indication: PRODUCT USED FOR UNKNOWN INDICATION
     Dosage: UNK, QD (BEFORE BREAKFAST)
     Route: 048

REACTIONS (3)
  - Pyrexia [Recovered/Resolved]
  - Febrile neutropenia [Recovered/Resolved]
  - Febrile neutropenia [Recovered/Resolved]

NARRATIVE: CASE EVENT DATE: 20191010
